FAERS Safety Report 6369958-8 (Version None)
Quarter: 2009Q3

REPORT INFORMATION
  Report Type: 
  Country: None (occurrence: None)
  Receive Date: 20090923
  Receipt Date: 20070905
  Transmission Date: 20100115
  Serious: Yes (Hospitalization)
  Sender: FDA-Public Use
  Company Number: US-ASTRAZENECA-2006UW08252

PATIENT
  Age: 16090 Day
  Sex: Male
  Weight: 126.1 kg

DRUGS (15)
  1. SEROQUEL [Suspect]
     Indication: SCHIZOPHRENIA
     Dosage: 200 MG TWICE A DAY, 300 MG QHS, 400 MG AT BED TIME
     Route: 048
     Dates: start: 20050510
  2. LOXAPINE [Concomitant]
     Dosage: 50 MG TO 100 MG
     Route: 065
  3. TRAZODONE [Concomitant]
     Dosage: 50 MG TO 100 MG
     Route: 065
  4. ZANTAC [Concomitant]
     Route: 048
  5. SONATA [Concomitant]
     Indication: INSOMNIA
     Dosage: 5 MG TO 10 MG
     Route: 065
  6. PLAVIX [Concomitant]
     Route: 048
  7. ASPIRIN [Concomitant]
     Route: 048
  8. NEURONTIN [Concomitant]
     Dosage: 300 MG BID, 600 MG TID, 1200 MG AT NIGHT
     Route: 065
  9. LEVAQUIN [Concomitant]
     Indication: PNEUMONIA
     Route: 065
  10. LASIX [Concomitant]
     Dosage: 40 MG QD TO 40 MG BID
     Route: 048
  11. LORTAB [Concomitant]
     Indication: PAIN
     Dosage: 5/500 1-2 EVERY 6 HOURS, 5/500 EVERY 4-6 HOURS, 5/500 EVERY 4-6 HOURS PM
     Route: 048
  12. INSULIN [Concomitant]
     Indication: DIABETES MELLITUS
     Dosage: 100 UNITS/ML-10 ML 20 FOR FS OF 151-200, 10 ML 40 FOR FS OF 201-250, 10 ML 60 FOR FS OF 251 -300
     Route: 058
     Dates: start: 20060524
  13. ULTRAM [Concomitant]
     Indication: PAIN
     Dosage: 50 MG 1-2 EVERY 8 HRS PRN, 50 MG Q SIX HRS PRN, 50 MG BID PRN
     Route: 048
  14. GLUCOPHAGE [Concomitant]
     Indication: TYPE 2 DIABETES MELLITUS
     Route: 065
  15. DOXEPIN HCL [Concomitant]
     Route: 065

REACTIONS (1)
  - TYPE 2 DIABETES MELLITUS [None]
